FAERS Safety Report 9375696 (Version 1)
Quarter: 2013Q2

REPORT INFORMATION
  Report Type: Spontaneous
  Country: GB (occurrence: GB)
  Receive Date: 20130628
  Receipt Date: 20130628
  Transmission Date: 20140414
  Serious: Yes (Death, Hospitalization)
  Sender: FDA-Public Use
  Company Number: GB-BAXTER-2013BAX017758

PATIENT
  Age: 68 Year
  Sex: Male
  Weight: 68.7 kg

DRUGS (2)
  1. DIANEAL PD4 GLUCOSE 1.36% W/V / 13.6 MG/ML [Suspect]
     Indication: RENAL FAILURE CHRONIC
     Route: 033
     Dates: start: 201303, end: 20130507
  2. DIANEAL PD4 GLUCOSE 2.27% W/V / 22.7 MG/ML [Suspect]
     Indication: RENAL FAILURE CHRONIC
     Route: 033
     Dates: start: 201303, end: 20130507

REACTIONS (5)
  - Cardiac arrest [Fatal]
  - Circulatory collapse [Unknown]
  - Hypotension [Unknown]
  - Cardiac failure [Not Recovered/Not Resolved]
  - Failure to thrive [Not Recovered/Not Resolved]
